FAERS Safety Report 14280079 (Version 1)
Quarter: 2017Q4

REPORT INFORMATION
  Report Type: Spontaneous
  Country: PL (occurrence: PL)
  Receive Date: 20171212
  Receipt Date: 20171212
  Transmission Date: 20180321
  Serious: Yes (Hospitalization, Other)
  Sender: FDA-Public Use
  Company Number: PL-BAUSCH-BL-2017-032481

PATIENT
  Age: 65 Year
  Sex: Male

DRUGS (3)
  1. VERAPAMIL [Suspect]
     Active Substance: VERAPAMIL HYDROCHLORIDE
     Indication: HYPERTENSION
     Route: 065
  2. LITHIUM CARBONATE. [Interacting]
     Active Substance: LITHIUM CARBONATE
     Indication: BIPOLAR DISORDER
     Route: 065
  3. ENALAPRIL [Suspect]
     Active Substance: ENALAPRIL
     Indication: HYPERTENSION
     Route: 065

REACTIONS (9)
  - Drug level increased [Recovered/Resolved]
  - Nephrogenic diabetes insipidus [Unknown]
  - Hyperparathyroidism primary [Recovered/Resolved]
  - Drug interaction [Unknown]
  - Pancreatitis acute [Unknown]
  - Constipation [Unknown]
  - Hypothyroidism [Not Recovered/Not Resolved]
  - Nausea [Unknown]
  - Vomiting [Unknown]
